FAERS Safety Report 4456239-2 (Version None)
Quarter: 2004Q3

REPORT INFORMATION
  Report Type: 
  Country: None (occurrence: None)
  Receive Date: 20040920
  Receipt Date: 20040910
  Transmission Date: 20050211
  Serious: Yes (Other)
  Sender: FDA-Public Use
  Company Number: 2004-09-0477

PATIENT
  Age: 65 Year
  Sex: Female

DRUGS (6)
  1. BETAMETHASONE DIPROPIONATE [Suspect]
     Indication: OSTEOARTHRITIS
     Dosage: INTRA-ARTICULAR
     Route: 014
  2. ;EXOMIL (BROMAZEPAM) [Concomitant]
  3. NEXIUM [Concomitant]
  4. DAFLON [Concomitant]
  5. HYZAAR [Concomitant]
  6. MOXONIDINE [Concomitant]

REACTIONS (4)
  - BLOOD PRESSURE DECREASED [None]
  - ERYTHEMA [None]
  - FACE OEDEMA [None]
  - HYPERSENSITIVITY [None]
